FAERS Safety Report 13368448 (Version 1)
Quarter: 2017Q1

REPORT INFORMATION
  Report Type: Spontaneous
  Country: US (occurrence: US)
  Receive Date: 20170324
  Receipt Date: 20170324
  Transmission Date: 20170429
  Serious: No
  Sender: FDA-Public Use
  Company Number: US-PFIZER INC-2017120894

PATIENT
  Age: 75 Year
  Sex: Female

DRUGS (1)
  1. XELJANZ [Suspect]
     Active Substance: TOFACITINIB CITRATE
     Dosage: 5 MG, DAILY

REACTIONS (14)
  - Neck pain [Unknown]
  - Anaemia [Unknown]
  - Muscular weakness [Unknown]
  - Fatigue [Unknown]
  - Joint swelling [Unknown]
  - Hypertension [Unknown]
  - Arthralgia [Unknown]
  - Anxiety [Unknown]
  - Peripheral swelling [Unknown]
  - Depression [Unknown]
  - Back pain [Unknown]
  - Insomnia [Unknown]
  - Myalgia [Unknown]
  - Contusion [Unknown]
